FAERS Safety Report 8528848-2 (Version None)
Quarter: 2012Q3

REPORT INFORMATION
  Report Type: 
  Country: None (occurrence: None)
  Receive Date: 20120723
  Receipt Date: 20120718
  Transmission Date: 20120928
  Serious: No
  Sender: FDA-Public Use
  Company Number: US-PFIZER INC-2012174417

PATIENT
  Sex: Male
  Weight: 109 kg

DRUGS (2)
  1. FLECTOR [Suspect]
     Indication: JOINT RANGE OF MOTION DECREASED
     Dosage: UNK, AS NEEDED
     Dates: start: 20120701
  2. FLECTOR [Suspect]
     Indication: PAIN IN EXTREMITY

REACTIONS (1)
  - DRUG INEFFECTIVE [None]
